FAERS Safety Report 5038099-4 (Version None)
Quarter: 2006Q2

REPORT INFORMATION
  Report Type: 
  Country: None (occurrence: None)
  Receive Date: 20060622
  Receipt Date: 20060605
  Transmission Date: 20061013
  Serious: Yes (Disabling)
  Sender: FDA-Public Use
  Company Number: CA200603001488

PATIENT
  Age: 62 Year
  Sex: Male
  Weight: 85.7 kg

DRUGS (4)
  1. STRATTERA [Suspect]
     Indication: ATTENTION DEFICIT/HYPERACTIVITY DISORDER
     Dosage: SEE IMAGE
     Dates: start: 20051220, end: 20060101
  2. STRATTERA [Suspect]
     Indication: ATTENTION DEFICIT/HYPERACTIVITY DISORDER
     Dosage: SEE IMAGE
     Dates: start: 20060101, end: 20060119
  3. REMERON [Concomitant]
  4. CLONAZEPAM [Concomitant]

REACTIONS (10)
  - CHROMATURIA [None]
  - DYSURIA [None]
  - ERECTILE DYSFUNCTION [None]
  - MASS [None]
  - NAUSEA [None]
  - PANIC REACTION [None]
  - PRIAPISM [None]
  - SENSORY LOSS [None]
  - URINE ODOUR ABNORMAL [None]
  - URINE OUTPUT DECREASED [None]
